FAERS Safety Report 9133551 (Version 1)
Quarter: 2013Q1

REPORT INFORMATION
  Report Type: Spontaneous
  Country: US (occurrence: US)
  Receive Date: 20130124
  Receipt Date: 20130124
  Transmission Date: 20140127
  Serious: Yes (Other)
  Sender: FDA-Public Use
  Company Number: US-BRACCO-007733

PATIENT
  Age: 17 Year
  Sex: Female
  Weight: 68 kg

DRUGS (3)
  1. MULTIHANCE [Suspect]
     Indication: NUCLEAR MAGNETIC RESONANCE IMAGING BRAIN
     Route: 042
     Dates: start: 20120316, end: 20120316
  2. MULTIHANCE [Suspect]
     Indication: SYNCOPE
     Route: 042
     Dates: start: 20120316, end: 20120316
  3. MULTIHANCE [Suspect]
     Indication: HEADACHE
     Route: 042
     Dates: start: 20120316, end: 20120316

REACTIONS (5)
  - Laryngeal oedema [Recovered/Resolved]
  - Dyspnoea [Recovered/Resolved]
  - Lip swelling [Recovered/Resolved]
  - Urticaria [Recovered/Resolved]
  - Pruritus [Recovered/Resolved]
